FAERS Safety Report 17629726 (Version 1)
Quarter: 2020Q2

REPORT INFORMATION
  Report Type: Report from Study
  Country: US (occurrence: US)
  Receive Date: 20200406
  Receipt Date: 20200406
  Transmission Date: 20200713
  Serious: Yes (Hospitalization, Other)
  Sender: FDA-Public Use
  Company Number: US-BRISTOL-MYERS SQUIBB COMPANY-BMS-2020-020231

PATIENT
  Age: 58 Year
  Sex: Male
  Weight: 87.4 kg

DRUGS (2)
  1. COPANLISIB. [Suspect]
     Active Substance: COPANLISIB
     Indication: ADENOCARCINOMA OF COLON
     Dosage: 180 MILLIGRAM
     Route: 042
     Dates: start: 20190811, end: 20200214
  2. NIVOLUMAB [Suspect]
     Active Substance: NIVOLUMAB
     Indication: ADENOCARCINOMA OF COLON
     Dosage: 480 MILLIGRAM
     Route: 042
     Dates: start: 20190811, end: 20200131

REACTIONS (6)
  - Cholecystitis [Recovered/Resolved]
  - Blood bilirubin increased [Recovered/Resolved]
  - Biliary tract infection [Recovered/Resolved]
  - Urinary tract infection [Recovered/Resolved]
  - Bile duct stone [Unknown]
  - Anaemia [Unknown]

NARRATIVE: CASE EVENT DATE: 20200227
